FAERS Safety Report 8494894-0 (Version None)
Quarter: 2012Q3

REPORT INFORMATION
  Report Type: 
  Country: None (occurrence: None)
  Receive Date: 20120709
  Receipt Date: 20120629
  Transmission Date: 20120928
  Serious: Yes (Other)
  Sender: FDA-Public Use
  Company Number: BR-ABBOTT-12P-020-0948907-00

PATIENT
  Sex: Male
  Weight: 8 kg

DRUGS (7)
  1. DOMPERIDONE [Concomitant]
     Indication: VOMITING
     Dosage: IN THE MORNING, AT NOON AND AT NIGHT, FORM STRENGTH 1 MILLIGRAM
     Route: 048
  2. BENDROFLUMETHIAZIDE + FLUPHENAZINE HYDROCHLORIDE (DISERIM) [Concomitant]
     Indication: VITAMIN SUPPLEMENTATION
     Dosage: FORM STRENGTH 150 MILLIGRAM
     Route: 048
  3. CREON [Suspect]
     Indication: DYSPEPSIA
     Dosage: 6:00 AM, 9:00 AM, 12:00 AM, 3:00 PM, 6:00 PM
     Route: 048
     Dates: start: 20101201
  4. PHENOBARBITAL TAB [Concomitant]
     Indication: CONVULSION
     Dosage: FORM STRENGTH 40 MILLIGRAM
     Route: 048
     Dates: start: 20110801
  5. RANITIDINE [Concomitant]
     Indication: GASTRIC DISORDER
     Dosage: IN THE MORNING, AT NIGHT, FORM STRENGTH 50 MILLIGRAM
     Route: 048
  6. UNSPECIFIED VITAMIN ABEC [Concomitant]
     Indication: VITAMIN SUPPLEMENTATION
     Dosage: FORM STRENGTH 30 MILLILITRE(S)
     Route: 048
  7. REDOXON [Concomitant]
     Indication: VITAMIN SUPPLEMENTATION
     Dosage: FORM STRENGTH 20 MILLILITRE(S)
     Route: 048

REACTIONS (3)
  - CONVULSION [None]
  - STEATORRHOEA [None]
  - INCORRECT DOSE ADMINISTERED [None]
